FAERS Safety Report 5790295-4 (Version None)
Quarter: 2008Q2

REPORT INFORMATION
  Report Type: 
  Country: None (occurrence: None)
  Receive Date: 20080626
  Receipt Date: 20080619
  Transmission Date: 20081010
  Serious: Yes (Hospitalization)
  Sender: FDA-Public Use
  Company Number: US-BRISTOL-MYERS SQUIBB COMPANY-14235410

PATIENT
  Age: 50 Year
  Sex: Female
  Weight: 68 kg

DRUGS (1)
  1. DASATINIB [Suspect]
     Indication: SARCOMA
     Dates: start: 20080527, end: 20080611

REACTIONS (3)
  - DEHYDRATION [None]
  - DIARRHOEA [None]
  - SPINAL CORD COMPRESSION [None]
